FAERS Safety Report 15174738 (Version 1)
Quarter: 2018Q3

REPORT INFORMATION
  Report Type: Report from Study
  Country: US (occurrence: US)
  Receive Date: 20180720
  Receipt Date: 20180720
  Transmission Date: 20181010
  Serious: No
  Sender: FDA-Public Use
  Company Number: US-AMGEN-USASL2018062989

PATIENT
  Age: 82 Year
  Sex: Female

DRUGS (1)
  1. REPATHA [Suspect]
     Active Substance: EVOLOCUMAB
     Indication: HYPERCHOLESTEROLAEMIA
     Dosage: 140 MG/ML, Q2WK
     Route: 065
     Dates: start: 20180504

REACTIONS (17)
  - Swelling face [Not Recovered/Not Resolved]
  - Oral discomfort [Recovering/Resolving]
  - Lip pain [Recovering/Resolving]
  - Sneezing [Not Recovered/Not Resolved]
  - Diarrhoea [Recovered/Resolved]
  - Throat irritation [Not Recovered/Not Resolved]
  - Eye pruritus [Not Recovered/Not Resolved]
  - Cough [Not Recovered/Not Resolved]
  - Ear pruritus [Not Recovered/Not Resolved]
  - Lip swelling [Recovering/Resolving]
  - Pruritus generalised [Not Recovered/Not Resolved]
  - Glossitis [Not Recovered/Not Resolved]
  - Lip pruritus [Recovering/Resolving]
  - Formication [Not Recovered/Not Resolved]
  - Glossodynia [Not Recovered/Not Resolved]
  - Paraesthesia oral [Not Recovered/Not Resolved]
  - Nervousness [Not Recovered/Not Resolved]

NARRATIVE: CASE EVENT DATE: 20180506
